FAERS Safety Report 21134389 (Version 3)
Quarter: 2023Q2

REPORT INFORMATION
  Report Type: Spontaneous
  Country: AT (occurrence: AT)
  Receive Date: 20220726
  Receipt Date: 20230428
  Transmission Date: 20230721
  Serious: Yes (Other)
  Sender: FDA-Public Use
  Company Number: AT-BRISTOL-MYERS SQUIBB COMPANY-2022-079633

PATIENT
  Age: 48 Year
  Sex: Male
  Weight: 67 kg

DRUGS (2)
  1. NIVOLUMAB [Suspect]
     Active Substance: NIVOLUMAB
     Indication: Metastatic malignant melanoma
     Dosage: OPDIVO + YERVOY ADMINISTERED 3 CYCLES IN 12.2020 ?OPDIVO MONO ADMINISTERED 4 CYCLES TILL 12.2021 AND
     Route: 042
  2. IPILIMUMAB [Suspect]
     Active Substance: IPILIMUMAB
     Indication: Metastatic malignant melanoma
     Dosage: OPDIVO + YERVOY ADMINISTERED 3 CYCLES IN 12.2020
     Route: 042

REACTIONS (1)
  - Fall [Unknown]
